FAERS Safety Report 10386524 (Version 1)
Quarter: 2014Q1

REPORT INFORMATION
  Report Type: Report from Study
  Country: US (occurrence: None)
  Receive Date: 20140306
  Receipt Date: 20140306
  Transmission Date: 20141002
  Serious: No
  Sender: FDA-Public Use
  Company Number: 163-21880-12103126

PATIENT
  Age: 52 Year
  Sex: Male

DRUGS (11)
  1. REVLIMID (LENALIDOMIDE) (CAPSULES) [Suspect]
     Indication: PLASMA CELL MYELOMA
     Route: 048
     Dates: start: 20110929
  2. DEXAMETHASONE (DEXAMETHASONE) [Suspect]
     Indication: PLASMA CELL MYELOMA
     Route: 048
     Dates: start: 20110928
  3. ELOTUZUMAB [Suspect]
     Indication: PLASMA CELL MYELOMA
     Route: 042
     Dates: start: 20110929
  4. BENADRYL (DIPHENHYDRAMINE HYDROCHLORIDE) [Concomitant]
  5. ZOFRAN (ONDANSETRON HYDROCHLORIDE) [Concomitant]
  6. ROBITUSIN (GUAIFENESIN) [Concomitant]
  7. AMOXICILLIN (AMOXICILLIN) [Concomitant]
  8. ASPIRIN (ACETYLSALICYLIC ACID) [Concomitant]
  9. STOOL SOFTENER (DOCUSATE SODIUM) [Concomitant]
  10. MULTIPLE VITAMINS (MULTIPLE VITAMINS) [Concomitant]
  11. ASA (ACETYLSALICYLIC ACID) [Concomitant]

REACTIONS (1)
  - Pneumonia [None]
